FAERS Safety Report 22254862 (Version 1)
Quarter: 2023Q2

REPORT INFORMATION
  Report Type: Spontaneous
  Country: AU (occurrence: AU)
  Receive Date: 20230426
  Receipt Date: 20230426
  Transmission Date: 20230722
  Serious: Yes (Other)
  Sender: FDA-Public Use
  Company Number: AU-BAYER-2020-102906

PATIENT
  Age: 48 Year
  Sex: Female
  Weight: 108 kg

DRUGS (1)
  1. NEXAVAR [Suspect]
     Active Substance: SORAFENIB
     Dosage: DAILY DOSE 800 MG
     Dates: start: 20160608

REACTIONS (4)
  - Hepatocellular carcinoma [None]
  - Arthralgia [None]
  - Myalgia [None]
  - Weight decreased [None]

NARRATIVE: CASE EVENT DATE: 20170608
